FAERS Safety Report 5205397-0 (Version None)
Quarter: 2007Q1

REPORT INFORMATION
  Report Type: 
  Country: None (occurrence: None)
  Receive Date: 20070108
  Receipt Date: 20061227
  Transmission Date: 20070707
  Serious: Yes (Death, Hospitalization)
  Sender: FDA-Public Use
  Company Number: 2006BI015354

PATIENT
  Age: 54 Year
  Sex: Female
  Weight: 47 kg

DRUGS (9)
  1. AVONEX [Suspect]
     Indication: MULTIPLE SCLEROSIS
     Dosage: 30 UG;QW;IM
     Route: 030
     Dates: start: 20010801, end: 20061018
  2. DILANTIN [Concomitant]
  3. KEPPRA [Concomitant]
  4. ATROVENT [Concomitant]
  5. FLOVENT [Concomitant]
  6. IBUPROFEN [Concomitant]
  7. PAXIL [Concomitant]
  8. TRILEPTAL [Concomitant]
  9. OXCARBAZEPINE [Concomitant]

REACTIONS (34)
  - ABDOMINAL PAIN [None]
  - ALANINE AMINOTRANSFERASE INCREASED [None]
  - ARTHRALGIA [None]
  - ASPARTATE AMINOTRANSFERASE INCREASED [None]
  - ASTHENIA [None]
  - BACTERIAL TOXAEMIA [None]
  - BLOOD ALKALINE PHOSPHATASE INCREASED [None]
  - CARDIAC ARREST [None]
  - CHRONIC OBSTRUCTIVE PULMONARY DISEASE [None]
  - DELIRIUM [None]
  - DISEASE RECURRENCE [None]
  - DISORIENTATION [None]
  - DRUG TOXICITY [None]
  - ERYTHEMA [None]
  - FALL [None]
  - GANGRENE [None]
  - HYPONATRAEMIA [None]
  - LETHARGY [None]
  - LIVEDO RETICULARIS [None]
  - LOCALISED INFECTION [None]
  - MALAISE [None]
  - METABOLIC ACIDOSIS [None]
  - MUSCLE NECROSIS [None]
  - NECROTISING FASCIITIS [None]
  - OEDEMA PERIPHERAL [None]
  - PAIN IN EXTREMITY [None]
  - PARTIAL SEIZURES [None]
  - PARTIAL SEIZURES WITH SECONDARY GENERALISATION [None]
  - PATHOGEN RESISTANCE [None]
  - PROCEDURAL COMPLICATION [None]
  - PROTEIN TOTAL DECREASED [None]
  - SEPTIC SHOCK [None]
  - STAPHYLOCOCCAL INFECTION [None]
  - WHITE BLOOD CELL COUNT DECREASED [None]
